FAERS Safety Report 20104773 (Version 1)
Quarter: 2021Q4

REPORT INFORMATION
  Report Type: Spontaneous
  Country: GB (occurrence: GB)
  Receive Date: 20211124
  Receipt Date: 20211124
  Transmission Date: 20220303
  Serious: Yes (Other)
  Sender: FDA-Public Use
  Company Number: GB-MHRA-TPP54748320C3282577YC1618671216901

PATIENT
  Age: 34 Year
  Sex: Female
  Weight: 90 kg

DRUGS (1)
  1. CODEINE [Suspect]
     Active Substance: CODEINE
     Indication: Ill-defined disorder
     Dosage: UNK
     Route: 065
     Dates: start: 20210417

REACTIONS (3)
  - Loss of consciousness [Unknown]
  - Adverse drug reaction [Unknown]
  - Rash [Unknown]

NARRATIVE: CASE EVENT DATE: 20210417
